FAERS Safety Report 9928541 (Version 1)
Quarter: 2014Q1

REPORT INFORMATION
  Report Type: Spontaneous
  Country: US (occurrence: None)
  Receive Date: 20140226
  Receipt Date: 20140226
  Transmission Date: 20141002
  Serious: Yes (Hospitalization)
  Sender: FDA-Public Use
  Company Number: None

PATIENT
  Age: 61 Year
  Sex: Male
  Weight: 73.3 kg

DRUGS (2)
  1. LISINOPRIL [Suspect]
     Indication: HYPERTENSION
     Dosage: MG
     Route: 048
     Dates: start: 20131119, end: 20140201
  2. SULFAMETHOXAZOLE/TRIMETHOPRIM [Suspect]
     Dosage: MG
     Route: 048
     Dates: start: 20140126, end: 20140201

REACTIONS (1)
  - Angioedema [None]
